FAERS Safety Report 11252956 (Version 3)
Quarter: 2015Q4

REPORT INFORMATION
  Report Type: Report from Study
  Country: US (occurrence: US)
  Receive Date: 20150708
  Receipt Date: 20151006
  Transmission Date: 20160304
  Serious: No
  Sender: FDA-Public Use
  Company Number: US-AMGEN-USASP2015065823

PATIENT
  Age: 57 Year
  Sex: Female

DRUGS (2)
  1. ENBREL [Suspect]
     Active Substance: ETANERCEPT
     Dosage: UNK
     Route: 065
  2. ENBREL [Suspect]
     Active Substance: ETANERCEPT
     Indication: RHEUMATOID ARTHRITIS
     Dosage: 50 MG, QWK
     Route: 065
     Dates: start: 201501

REACTIONS (12)
  - Vomiting [Recovered/Resolved]
  - Diarrhoea [Recovered/Resolved]
  - Hair texture abnormal [Unknown]
  - Injection site erythema [Recovered/Resolved]
  - Psychomotor hyperactivity [Unknown]
  - Injection site pain [Unknown]
  - Abdominal discomfort [Recovered/Resolved]
  - Injection site reaction [Unknown]
  - Influenza like illness [Recovered/Resolved]
  - Device issue [Unknown]
  - Sleep disorder [Unknown]
  - Alopecia [Unknown]

NARRATIVE: CASE EVENT DATE: 2015
